FAERS Safety Report 24823648 (Version 3)
Quarter: 2025Q2

REPORT INFORMATION
  Report Type: Spontaneous
  Country: JP (occurrence: JP)
  Receive Date: 20250109
  Receipt Date: 20250506
  Transmission Date: 20250716
  Serious: Yes (Death)
  Sender: AMGEN
  Company Number: JP-AMGEN-JPNSP2024257412

PATIENT
  Age: 76 Year
  Sex: Male
  Weight: 59.2 kg

DRUGS (12)
  1. TAVNEOS [Suspect]
     Active Substance: AVACOPAN
     Indication: Granulomatosis with polyangiitis
     Dosage: 30 MG, BID
     Route: 048
     Dates: start: 20231005, end: 20231220
  2. PREDONINE [Concomitant]
     Active Substance: PREDNISOLONE
     Indication: Granulomatosis with polyangiitis
     Dosage: 60 MG, QD
     Route: 048
  3. PREDONINE [Concomitant]
     Active Substance: PREDNISOLONE
     Dosage: 12.5 MG, QD
     Route: 048
  4. CYCLOPHOSPHAMIDE [Concomitant]
     Active Substance: CYCLOPHOSPHAMIDE
     Indication: Granulomatosis with polyangiitis
     Dosage: 500 MG, QD
     Route: 042
     Dates: start: 20231115
  5. ATOVAQUONE [Concomitant]
     Active Substance: ATOVAQUONE
     Indication: Antifungal prophylaxis
     Dosage: 2 DF, QD
     Route: 048
     Dates: start: 20230825, end: 20240107
  6. EDOXABAN TOSYLATE [Concomitant]
     Active Substance: EDOXABAN TOSYLATE
     Dosage: 30 MG, QD
     Route: 048
     Dates: start: 20231201, end: 20231201
  7. VONOPRAZAN FUMARATE [Concomitant]
     Active Substance: VONOPRAZAN FUMARATE
     Dosage: 20 MG, QD
     Route: 048
  8. ALENDRONATE [Concomitant]
     Active Substance: ALENDRONATE SODIUM
     Dosage: UNK, QW
     Route: 048
  9. DAYVIGO [Concomitant]
     Active Substance: LEMBOREXANT
     Dosage: 10 MG, QD
     Route: 048
  10. PANCRELIPASE [Concomitant]
     Active Substance: PANCRELIPASE
     Dosage: 150 MG, TID
     Route: 048
  11. LACTULOSE [Concomitant]
     Active Substance: LACTULOSE
     Dosage: 2 DF, BID
     Route: 048
  12. LINZESS [Concomitant]
     Active Substance: LINACLOTIDE
     Route: 048

REACTIONS (1)
  - Vanishing bile duct syndrome [Fatal]

NARRATIVE: CASE EVENT DATE: 20231127
